FAERS Safety Report 8806633 (Version 3)
Quarter: 2012Q4

REPORT INFORMATION
  Report Type: 
  Country: US (occurrence: US)
  Receive Date: 20120925
  Receipt Date: 20121015
  Transmission Date: 20130627
  Serious: Yes (Hospitalization)
  Sender: FDA-Public Use
  Company Number: US-SANOFI-AVENTIS-2012SA068493

PATIENT
  Age: 14 Year
  Sex: Female
  Weight: 67.7 kg

DRUGS (3)
  1. APIDRA [Suspect]
     Indication: TYPE I DIABETES MELLITUS
     Dosage: Continuous insulin infusion via One-Touch Programmable Pump
     Route: 058
     Dates: end: 20120811
  2. APIDRA [Suspect]
     Indication: TYPE I DIABETES MELLITUS
     Dosage: Continuous insulin infusion via One-Touch Programmable Pump
     Route: 058
     Dates: end: 20120811
  3. APIDRA [Suspect]
     Indication: TYPE I DIABETES MELLITUS
     Dosage: Continuous insulin infusion via One-Touch Programmable Pump
     Route: 058
     Dates: end: 20120811

REACTIONS (9)
  - Diabetic ketoacidosis [Recovered/Resolved]
  - Metabolic acidosis [Recovered/Resolved]
  - Hyperglycaemia [Recovered/Resolved]
  - Vomiting [Recovered/Resolved]
  - Polydipsia [Recovered/Resolved]
  - Wrong technique in drug usage process [Recovered/Resolved]
  - Blood glucose increased [Recovering/Resolving]
  - Decreased activity [Recovering/Resolving]
  - Malaise [Recovering/Resolving]
